FAERS Safety Report 17338916 (Version 1)
Quarter: 2020Q1

REPORT INFORMATION
  Report Type: Spontaneous
  Country: US (occurrence: US)
  Receive Date: 20200113
  Receipt Date: 20200113
  Transmission Date: 20200409
  Serious: Yes (Death, Life-Threatening, Disabling)
  Sender: FDA-Public Use
  Company Number: None

PATIENT
  Age: 27 Year
  Sex: Female
  Weight: 68.04 kg

DRUGS (1)
  1. MARIJUANA [Suspect]
     Active Substance: CANNABIS SATIVA SUBSP. INDICA TOP
     Route: 048

REACTIONS (6)
  - Homicide [None]
  - Anger [None]
  - Dyspnoea [None]
  - Vision blurred [None]
  - Nausea [None]
  - Hallucination [None]

NARRATIVE: CASE EVENT DATE: 20180528
